FAERS Safety Report 15759603 (Version 3)
Quarter: 2019Q1

REPORT INFORMATION
  Report Type: Spontaneous
  Country: US (occurrence: US)
  Receive Date: 20181226
  Receipt Date: 20190122
  Transmission Date: 20190417
  Serious: No
  Sender: FDA-Public Use
  Company Number: US-BRISTOL-MYERS SQUIBB COMPANY-BMS-2018-119486

PATIENT
  Sex: Female
  Weight: 36.29 kg

DRUGS (1)
  1. ELIQUIS [Suspect]
     Active Substance: APIXABAN
     Indication: THROMBOSIS PROPHYLAXIS
     Dosage: 2.5 MG, QD
     Route: 048
     Dates: start: 20181029

REACTIONS (14)
  - Erythema [Not Recovered/Not Resolved]
  - Retching [Not Recovered/Not Resolved]
  - Feeling abnormal [Unknown]
  - Scar [Not Recovered/Not Resolved]
  - Gastrooesophageal reflux disease [Not Recovered/Not Resolved]
  - Presyncope [Not Recovered/Not Resolved]
  - Wrong technique in product usage process [Unknown]
  - Nasopharyngitis [Not Recovered/Not Resolved]
  - Weight decreased [Unknown]
  - Dizziness [Not Recovered/Not Resolved]
  - Movement disorder [Not Recovered/Not Resolved]
  - Urinary tract infection [Not Recovered/Not Resolved]
  - Asthenia [Not Recovered/Not Resolved]
  - Hypoaesthesia [Unknown]
